FAERS Safety Report 9766488 (Version 2)
Quarter: 2014Q2

REPORT INFORMATION
  Report Type: Spontaneous
  Country: US (occurrence: US)
  Receive Date: 20131217
  Receipt Date: 20140421
  Transmission Date: 20141212
  Serious: No
  Sender: FDA-Public Use
  Company Number: US-BIOGENIDEC-2013BI118064

PATIENT
  Age: 62 Year
  Sex: Male
  Weight: 83 kg

DRUGS (7)
  1. TECFIDERA [Suspect]
     Indication: MULTIPLE SCLEROSIS
     Route: 048
     Dates: start: 20130729
  2. TECFIDERA [Suspect]
     Indication: MULTIPLE SCLEROSIS
     Route: 048
     Dates: start: 201310
  3. OMEPRAZOLE [Concomitant]
  4. TAMSULOSIN [Concomitant]
  5. FINASTERIDE [Concomitant]
  6. FLOMAX [Concomitant]
  7. ASPIRIN [Concomitant]

REACTIONS (2)
  - Constipation [Not Recovered/Not Resolved]
  - Flushing [Recovered/Resolved]
